FAERS Safety Report 9569128 (Version 1)
Quarter: 2013Q3

REPORT INFORMATION
  Report Type: Spontaneous
  Country: US (occurrence: US)
  Receive Date: 20130930
  Receipt Date: 20130930
  Transmission Date: 20140515
  Serious: No
  Sender: FDA-Public Use
  Company Number: US-AMGEN-USASP2013059273

PATIENT
  Age: 49 Year
  Sex: Female
  Weight: 86.16 kg

DRUGS (3)
  1. ENBREL [Suspect]
     Indication: PRODUCT USED FOR UNKNOWN INDICATION
     Dosage: 50 MG, QWK
     Route: 058
  2. COZAAR [Concomitant]
     Dosage: 25 MG, UNK
  3. SYNTHROID [Concomitant]
     Dosage: 100 MUG, UNK

REACTIONS (1)
  - Dysgeusia [Unknown]
